FAERS Safety Report 7307696-5 (Version None)
Quarter: 2011Q1

REPORT INFORMATION
  Report Type: 
  Country: None (occurrence: None)
  Receive Date: 20110223
  Receipt Date: 20110214
  Transmission Date: 20110831
  Serious: Yes (Death)
  Sender: FDA-Public Use
  Company Number: US-BAXTER-2010BH025903

PATIENT
  Age: 27 Year
  Sex: Female

DRUGS (11)
  1. SOLU-CORTEF [Concomitant]
     Indication: PREMEDICATION
     Route: 042
  2. LIDOCAINE [Concomitant]
     Indication: PREMEDICATION
     Route: 061
  3. GAMMAGARD LIQUID [Suspect]
     Indication: IMMUNODEFICIENCY COMMON VARIABLE
     Route: 042
     Dates: start: 20100825
  4. DIPHENHYDRAMINE [Concomitant]
     Indication: PREMEDICATION
     Route: 048
  5. DEXTROSE 5% [Concomitant]
     Indication: PREMEDICATION
     Route: 042
  6. NAPROSYN [Concomitant]
     Indication: PREMEDICATION
     Route: 048
  7. DEMEROL [Concomitant]
     Indication: PREMEDICATION
     Route: 042
  8. GAMMAGARD LIQUID [Suspect]
     Indication: PRIMARY IMMUNODEFICIENCY SYNDROME
     Route: 042
     Dates: start: 20100825
  9. GAMMAGARD LIQUID [Suspect]
     Route: 042
     Dates: start: 20100825
  10. GAMMAGARD LIQUID [Suspect]
     Route: 042
     Dates: start: 20100825
  11. PERIACTIN [Concomitant]
     Indication: PREMEDICATION

REACTIONS (1)
  - DEATH [None]
